FAERS Safety Report 4651090-2 (Version None)
Quarter: 2005Q2

REPORT INFORMATION
  Report Type: 
  Country: None (occurrence: None)
  Receive Date: 20050503
  Receipt Date: 20050422
  Transmission Date: 20051028
  Serious: Yes (Death)
  Sender: FDA-Public Use
  Company Number: CZ-ROCHE-402644

PATIENT
  Sex: Female
  Weight: 86 kg

DRUGS (5)
  1. MYCOPHENOLATE MOFETIL [Suspect]
     Route: 048
     Dates: start: 20040225, end: 20041202
  2. DACLIZUMAB [Suspect]
     Route: 042
  3. CYCLOSPORINE [Suspect]
     Route: 048
     Dates: start: 20041214, end: 20041225
  4. SIROLIMUS [Suspect]
     Route: 048
     Dates: start: 20040224, end: 20041209
  5. STEROID [Suspect]
     Route: 065

REACTIONS (6)
  - BLOOD CREATININE INCREASED [None]
  - CARDIAC FAILURE [None]
  - DEHYDRATION [None]
  - LARGE INTESTINE PERFORATION [None]
  - PERITONITIS [None]
  - SEPSIS [None]
